FAERS Safety Report 21502185 (Version 5)
Quarter: 2022Q4

REPORT INFORMATION
  Report Type: Spontaneous
  Country: DE (occurrence: DE)
  Receive Date: 20221025
  Receipt Date: 20221220
  Transmission Date: 20230113
  Serious: Yes (Life-Threatening, Hospitalization, Other)
  Sender: FDA-Public Use
  Company Number: DE-NOVARTISPH-NVSC2022DE233688

PATIENT
  Age: 5 Year
  Sex: Female
  Weight: 17 kg

DRUGS (24)
  1. CYCLOSPORINE [Suspect]
     Active Substance: CYCLOSPORINE
     Indication: Bone marrow transplant
     Dosage: 0.6 ML
     Route: 048
     Dates: start: 20220910, end: 2022
  2. CYCLOSPORINE [Suspect]
     Active Substance: CYCLOSPORINE
     Dosage: UNK
     Route: 065
     Dates: start: 2022, end: 2022
  3. CYCLOSPORINE [Suspect]
     Active Substance: CYCLOSPORINE
     Dosage: 1.4 ML
     Route: 048
     Dates: start: 2022, end: 2022
  4. CYCLOSPORINE [Suspect]
     Active Substance: CYCLOSPORINE
     Dosage: 2.8 ML
     Route: 048
     Dates: start: 2022, end: 20221010
  5. CYCLOSPORINE [Suspect]
     Active Substance: CYCLOSPORINE
     Dosage: UNK (0.8-2.8 ML)
     Route: 048
     Dates: start: 20220910, end: 20221010
  6. CYCLOSPORINE [Suspect]
     Active Substance: CYCLOSPORINE
     Dosage: 0.6 ML, BID
     Route: 048
     Dates: start: 2022
  7. METHYLPREDNISOLONE [Concomitant]
     Active Substance: METHYLPREDNISOLONE
     Indication: Product used for unknown indication
     Dosage: UNK (SEIT TX )
     Route: 048
     Dates: start: 202207
  8. AMLODIPINE [Concomitant]
     Active Substance: AMLODIPINE BESYLATE
     Indication: Product used for unknown indication
     Dosage: UNK (SUSPENSION, SEIT TX)
     Route: 048
     Dates: start: 202207
  9. AMLODIPINE [Concomitant]
     Active Substance: AMLODIPINE BESYLATE
     Dosage: UNK (SUSPENSION, SEIT TX)
     Route: 048
  10. ENALAPRIL [Concomitant]
     Active Substance: ENALAPRIL
     Indication: Product used for unknown indication
     Dosage: UNK (SUSPENSION, SEIT TX)
     Route: 048
     Dates: start: 202207
  11. ENALAPRIL [Concomitant]
     Active Substance: ENALAPRIL
     Dosage: UNK (SUSPENSION, SEIT TX)
     Route: 048
  12. NOXAFIL [Concomitant]
     Active Substance: POSACONAZOLE
     Indication: Product used for unknown indication
     Dosage: UNK (SEIT TX)
     Route: 048
     Dates: start: 202207
  13. NOXAFIL [Concomitant]
     Active Substance: POSACONAZOLE
     Dosage: UNK (SEIT TX)
     Route: 048
  14. VALCYTE [Concomitant]
     Active Substance: VALGANCICLOVIR HYDROCHLORIDE
     Indication: Product used for unknown indication
     Dosage: UNK (SUSPENSION, SEIT TX)
     Route: 048
     Dates: start: 202207
  15. VALCYTE [Concomitant]
     Active Substance: VALGANCICLOVIR HYDROCHLORIDE
     Dosage: UNK (SUSPENSION, SEIT TX)
     Route: 048
  16. COTRIM [Concomitant]
     Active Substance: SULFAMETHOXAZOLE\TRIMETHOPRIM
     Indication: Product used for unknown indication
     Dosage: UNK (400/80, SEIT TX)
     Route: 048
     Dates: start: 202207
  17. COTRIM [Concomitant]
     Active Substance: SULFAMETHOXAZOLE\TRIMETHOPRIM
     Dosage: UNK (400/80, SEIT TX)
     Route: 048
  18. ONDANSETRON [Concomitant]
     Active Substance: ONDANSETRON
     Indication: Product used for unknown indication
     Dosage: UNK (SEIT TX)
     Route: 048
     Dates: start: 202207
  19. ONDANSETRON [Concomitant]
     Active Substance: ONDANSETRON
     Dosage: UNK (SEIT TX)
     Route: 048
  20. CALCIUM [Concomitant]
     Active Substance: CALCIUM
     Indication: Product used for unknown indication
     Dosage: UNK (SEIT TX)
     Route: 048
     Dates: start: 202207
  21. CALCIUM [Concomitant]
     Active Substance: CALCIUM
     Dosage: UNK (SEIT TX)
     Route: 048
  22. MAGNESIUM [Concomitant]
     Active Substance: MAGNESIUM
     Indication: Product used for unknown indication
     Dosage: UNK (SEIT TX)
     Route: 048
     Dates: start: 202207
  23. MAGNESIUM [Concomitant]
     Active Substance: MAGNESIUM
     Dosage: UNK (SEIT TX)
     Route: 048
  24. DIMETHINDENE [Concomitant]
     Active Substance: DIMETHINDENE
     Indication: Product used for unknown indication
     Dosage: UNK
     Route: 065

REACTIONS (13)
  - Product solubility abnormal [Recovering/Resolving]
  - Blood test abnormal [Recovering/Resolving]
  - Nausea [Recovering/Resolving]
  - Pyrexia [Recovering/Resolving]
  - Vomiting [Recovering/Resolving]
  - Abdominal pain [Recovering/Resolving]
  - Rash [Recovering/Resolving]
  - Drug ineffective [Recovering/Resolving]
  - Urticaria [Unknown]
  - Pain [Unknown]
  - Diarrhoea [Unknown]
  - Product quality issue [Unknown]
  - Product quality issue [Unknown]

NARRATIVE: CASE EVENT DATE: 20220101
